FAERS Safety Report 13014901 (Version 2)
Quarter: 2017Q1

REPORT INFORMATION
  Report Type: Spontaneous
  Country: CA (occurrence: CA)
  Receive Date: 20161209
  Receipt Date: 20170124
  Transmission Date: 20170428
  Serious: Yes (Hospitalization)
  Sender: FDA-Public Use
  Company Number: CA-ASTRAZENECA-2016SF28863

PATIENT
  Age: 61 Year
  Sex: Female
  Weight: 43.6 kg

DRUGS (6)
  1. XIGDUO XR [Suspect]
     Active Substance: DAPAGLIFLOZIN PROPANEDIOL\METFORMIN HYDROCHLORIDE
     Indication: DIABETES MELLITUS
     Dosage: 5 MG DAPAGLIFLOZIN + 850 MG METFORMIN, TWO TIMES DAILY
     Route: 048
     Dates: start: 20161005, end: 20161019
  2. IRBESTAN [Concomitant]
     Dates: start: 201607
  3. ROSUVASTATIN. [Concomitant]
     Active Substance: ROSUVASTATIN
     Dates: start: 201605
  4. SITAGLIPTIN [Concomitant]
     Active Substance: SITAGLIPTIN
     Dates: start: 201606
  5. TOLTERODINE ER [Concomitant]
  6. LEVOTHYROXINE. [Concomitant]
     Active Substance: LEVOTHYROXINE

REACTIONS (8)
  - Malaise [Recovering/Resolving]
  - Interstitial lung disease [Unknown]
  - Diarrhoea [Recovering/Resolving]
  - Dyspnoea [Recovering/Resolving]
  - Cough [Recovering/Resolving]
  - Pneumonia [Unknown]
  - Vomiting [Recovering/Resolving]
  - Burning sensation [Recovering/Resolving]

NARRATIVE: CASE EVENT DATE: 20161012
